FAERS Safety Report 23669565 (Version 2)
Quarter: 2024Q2

REPORT INFORMATION
  Report Type: Spontaneous
  Country: US (occurrence: US)
  Receive Date: 20240325
  Receipt Date: 20240405
  Transmission Date: 20240716
  Serious: Yes (Death, Hospitalization, Other)
  Sender: FDA-Public Use
  Company Number: US-GILEAD-2024-0666841

PATIENT
  Age: 83 Year
  Sex: Female

DRUGS (1)
  1. TECARTUS [Suspect]
     Active Substance: BREXUCABTAGENE AUTOLEUCEL
     Indication: Mantle cell lymphoma
     Dosage: UNK (4TH LINE OF THERAPY (OR LATER))
     Route: 065
     Dates: start: 20240208, end: 20240208

REACTIONS (4)
  - Death [Fatal]
  - Weight decreased [Unknown]
  - Immune effector cell-associated neurotoxicity syndrome [Unknown]
  - Confusional state [Unknown]

NARRATIVE: CASE EVENT DATE: 20240401
